FAERS Safety Report 7714134-7 (Version None)
Quarter: 2011Q3

REPORT INFORMATION
  Report Type: 
  Country: None (occurrence: None)
  Receive Date: 20110829
  Receipt Date: 20110822
  Transmission Date: 20111222
  Serious: Yes (Other)
  Sender: FDA-Public Use
  Company Number: US-BIOGENIDEC-2007BI015863

PATIENT
  Age: 63 Year
  Sex: Female
  Weight: 85 kg

DRUGS (19)
  1. TIZANIDINE HCL [Concomitant]
     Dates: start: 20020101
  2. REGLAN [Concomitant]
     Dates: start: 20000101
  3. ADVAIR DISKUS 100/50 [Concomitant]
     Route: 055
     Dates: start: 20020101
  4. NAMENDA [Concomitant]
     Route: 048
  5. TYSABRI [Suspect]
     Indication: MULTIPLE SCLEROSIS
     Route: 042
     Dates: start: 20070217, end: 20070618
  6. NEURONTIN [Concomitant]
     Dates: start: 20020101
  7. SINGULAIR [Concomitant]
     Dates: start: 20060101
  8. SPIRIVA [Concomitant]
     Dates: start: 20020101
  9. NORVASC [Concomitant]
     Dates: start: 20070301
  10. LISINOPRIL [Concomitant]
     Dates: start: 20060101
  11. VITAMIN D [Concomitant]
     Route: 048
  12. MULTIVITAMIN WITH IRON [Concomitant]
     Route: 048
  13. URSODIOL [Concomitant]
     Indication: BILIARY CIRRHOSIS PRIMARY
  14. LEVOTHYROXINE SODIUM [Concomitant]
  15. CALCIUM CARBONATE [Concomitant]
     Route: 048
  16. EFFEXOR [Concomitant]
     Dates: start: 20060101
  17. FOSAMAX [Concomitant]
     Dates: start: 20070201
  18. TYLENOL-500 [Concomitant]
     Indication: PAIN
  19. ADVIL LIQUI-GELS [Concomitant]
     Indication: PAIN

REACTIONS (1)
  - HEPATOTOXICITY [None]
